FAERS Safety Report 10094565 (Version 2)
Quarter: 2015Q1

REPORT INFORMATION
  Report Type: Spontaneous
  Country: US (occurrence: None)
  Receive Date: 20140418
  Receipt Date: 20150211
  Transmission Date: 20150720
  Serious: Yes (Other)
  Sender: FDA-Public Use
  Company Number: UTC-047196

PATIENT
  Age: 81 Year
  Sex: Female
  Weight: 74.4 kg

DRUGS (1)
  1. TYVASO [Suspect]
     Active Substance: TREPROSTINIL
     Indication: COR PULMONALE CHRONIC
     Dosage: 4 IN 1 D
     Route: 055
     Dates: start: 20140303

REACTIONS (2)
  - Pulmonary oedema [None]
  - Dyspnoea [None]

NARRATIVE: CASE EVENT DATE: 2014
